FAERS Safety Report 8200848-1 (Version None)
Quarter: 2012Q1

REPORT INFORMATION
  Report Type: 
  Country: None (occurrence: None)
  Receive Date: 20120223
  Receipt Date: 20120213
  Transmission Date: 20120608
  Serious: Yes (Other)
  Sender: FDA-Public Use
  Company Number: AECAN201100354

PATIENT
  Age: 19 Year
  Sex: Female

DRUGS (2)
  1. IMMUNE GLOBULIN INTRAVENOUS (HUMAN) [Suspect]
     Indication: ANGIOEDEMA
     Dosage: ; IV
     Route: 011
     Dates: start: 20100328
  2. HYDROXYCHLOROQUINE SULFATE [Suspect]
     Indication: ANGIOEDEMA

REACTIONS (2)
  - CONVULSION [None]
  - POSTERIOR REVERSIBLE ENCEPHALOPATHY SYNDROME [None]
